FAERS Safety Report 18846024 (Version 1)
Quarter: 2021Q1

REPORT INFORMATION
  Report Type: Report from Study
  Country: ES (occurrence: ES)
  Receive Date: 20210203
  Receipt Date: 20210203
  Transmission Date: 20210419
  Serious: No
  Sender: FDA-Public Use
  Company Number: ES-EXELIXIS-CABO-20031473

PATIENT
  Sex: Female

DRUGS (1)
  1. COMETRIQ [Suspect]
     Active Substance: CABOZANTINIB S-MALATE
     Indication: PRODUCT USED FOR UNKNOWN INDICATION
     Dosage: 20 MG
     Dates: start: 201701, end: 201909

REACTIONS (3)
  - Gastrointestinal toxicity [Unknown]
  - Neutropenia [Unknown]
  - Malignant neoplasm progression [Unknown]
